FAERS Safety Report 11906293 (Version 2)
Quarter: 2016Q1

REPORT INFORMATION
  Report Type: Spontaneous
  Country: US (occurrence: US)
  Receive Date: 20160111
  Receipt Date: 20160120
  Transmission Date: 20160526
  Serious: Yes (Hospitalization, Other)
  Sender: FDA-Public Use
  Company Number: US-OTSUKA-2016_000143

PATIENT
  Age: 9 Year
  Sex: Female
  Weight: 32.9 kg

DRUGS (36)
  1. DIPRIVAN [Suspect]
     Active Substance: PROPOFOL
     Dosage: 275 UG/KG/MIN AT 13:31
     Route: 065
     Dates: start: 20151021, end: 20151021
  2. ALLOPURINOL. [Concomitant]
     Active Substance: ALLOPURINOL
     Indication: PRODUCT USED FOR UNKNOWN INDICATION
     Dosage: UNK
     Route: 065
  3. ZOFRAN [Concomitant]
     Active Substance: ONDANSETRON HYDROCHLORIDE
     Indication: NAUSEA
     Dosage: 4 MG, IN 1 TOTAL
     Route: 042
     Dates: start: 20151021, end: 20151021
  4. ATARAX [Concomitant]
     Active Substance: HYDROXYZINE\HYDROXYZINE HYDROCHLORIDE
     Indication: PREMEDICATION
     Dosage: 25 MG, IN 1 TOTAL
     Route: 048
     Dates: start: 20151027, end: 20151027
  5. DOCUSATE SODIUM. [Concomitant]
     Active Substance: DOCUSATE SODIUM
     Indication: CONSTIPATION
     Dosage: 50 MG, IN 1 DAY
     Route: 048
     Dates: start: 20151109, end: 20151110
  6. CIPRO [Concomitant]
     Active Substance: CIPROFLOXACIN HYDROCHLORIDE
     Indication: NEUTROPENIA
     Dosage: 250 MG, 2 IN 1 DAY
     Route: 048
     Dates: start: 20151112
  7. DACOGEN [Suspect]
     Active Substance: DECITABINE
     Indication: ACUTE MYELOID LEUKAEMIA RECURRENT
     Dosage: 22.8 MG, IN 1 CYCLICAL EVERY 24 HOURS FOR 5 DOSES
     Route: 042
     Dates: start: 20151023, end: 20151027
  8. MYLOTARG [Suspect]
     Active Substance: GEMTUZUMAB OZOGAMICIN
     Indication: ACUTE MYELOID LEUKAEMIA RECURRENT
     Dosage: 3.42 MG, IN 1 TOTAL
     Route: 042
     Dates: start: 20151027, end: 20151027
  9. DIPRIVAN [Suspect]
     Active Substance: PROPOFOL
     Dosage: 250 UG/KG/MIN AT 13:06
     Route: 065
     Dates: start: 20151021, end: 20151021
  10. ROCEPHIN [Concomitant]
     Active Substance: CEFTRIAXONE SODIUM
     Indication: PYREXIA
     Dosage: 1700 MG, IN 1 TOTAL
     Route: 042
     Dates: start: 20151022, end: 20151022
  11. VANCOCIN [Concomitant]
     Active Substance: VANCOMYCIN HYDROCHLORIDE
     Indication: PYREXIA
     Dosage: 500 MG, 1 IN 6 HOUR
     Route: 042
     Dates: start: 20151027, end: 20151029
  12. DIFLUCAN [Suspect]
     Active Substance: FLUCONAZOLE
     Indication: ANTIFUNGAL PROPHYLAXIS
     Dosage: 200 MG, IN 1 DAY
     Route: 048
     Dates: start: 20151028
  13. DIPRIVAN [Suspect]
     Active Substance: PROPOFOL
     Dosage: 10 MG, IN 1 AS NECESSARY
     Route: 065
     Dates: start: 20151021, end: 20151021
  14. ZYLOPRIM [Concomitant]
     Active Substance: ALLOPURINOL
     Indication: ACUTE MYELOID LEUKAEMIA
     Dosage: 100 MG, 3 IN 1 DAY
     Route: 048
     Dates: start: 20151020, end: 20151027
  15. ZOFRAN [Concomitant]
     Active Substance: ONDANSETRON HYDROCHLORIDE
     Indication: VOMITING
     Dosage: 4.9 MG, IN 1 AS NECESSARY
     Route: 042
     Dates: start: 20151023, end: 20151025
  16. MARCAIN [Concomitant]
     Active Substance: BUPIVACAINE HYDROCHLORIDE
     Indication: PAIN
     Dosage: 9 ML
     Route: 058
     Dates: start: 20151021, end: 20151021
  17. SUBLIMAZE [Suspect]
     Active Substance: FENTANYL CITRATE
     Indication: SEDATION
     Dosage: 15 ?G, IN 1 AS NECESSARY
     Route: 042
     Dates: start: 20151109, end: 20151109
  18. MORPHINE [Concomitant]
     Active Substance: MORPHINE
     Indication: PAIN
     Dosage: 1 MG, IN 1 TOTAL
     Route: 042
     Dates: start: 20151021, end: 20151021
  19. MORPHINE [Concomitant]
     Active Substance: MORPHINE
     Dosage: 3 MG, IN 1 TOTAL
     Route: 042
     Dates: start: 20151022, end: 20151022
  20. BACTRIM [Concomitant]
     Active Substance: SULFAMETHOXAZOLE\TRIMETHOPRIM
     Indication: ANTIFUNGAL PROPHYLAXIS
     Dosage: 160 MG, 2 IN
     Route: 048
  21. BUPIVACAINE [Concomitant]
     Active Substance: BUPIVACAINE
     Indication: PAIN
     Dosage: UNK
     Route: 058
     Dates: start: 20151021, end: 20151021
  22. DIPRIVAN [Suspect]
     Active Substance: PROPOFOL
     Indication: ANAESTHESIA
     Dosage: 100 MG, IN 1 AS NECESSARY
     Route: 065
     Dates: start: 20151021, end: 20151021
  23. GAMUNEX [Suspect]
     Active Substance: HUMAN IMMUNOGLOBULIN G
     Indication: BLOOD IMMUNOGLOBULIN G DECREASED
     Dosage: 15 G, IN 1 TOTAL
     Route: 042
     Dates: start: 20151104, end: 20151104
  24. TYLENOL [Concomitant]
     Active Substance: ACETAMINOPHEN
     Indication: PREMEDICATION
     Dosage: UNK
     Route: 065
     Dates: start: 20151022, end: 20151023
  25. HEPARIN [Concomitant]
     Active Substance: HEPARIN SODIUM
     Indication: PROPHYLAXIS
     Dosage: 2.5 ML, IN 1 AS NECESSARY
     Route: 042
     Dates: start: 20151021, end: 20151021
  26. DIPRIVAN [Suspect]
     Active Substance: PROPOFOL
     Dosage: 200 UG/KG/MIN AT 14:04
     Route: 065
     Dates: start: 20151021, end: 20151021
  27. DIPRIVAN [Suspect]
     Active Substance: PROPOFOL
     Dosage: AT 14:13 STOPPED
     Route: 065
     Dates: start: 20151021
  28. TYLENOL [Concomitant]
     Active Substance: ACETAMINOPHEN
     Indication: PAIN
     Dosage: 480 MG, IN 1 AS NECESSARY
     Route: 065
  29. ZINC OXIDE. [Concomitant]
     Active Substance: ZINC OXIDE
     Indication: PROCTALGIA
     Dosage: UNK, 2 IN 1 DAY
     Route: 061
     Dates: start: 20151105, end: 20151110
  30. FENTANYL. [Concomitant]
     Active Substance: FENTANYL
     Indication: PAIN
     Dosage: 25 ?G
     Route: 065
     Dates: start: 20151021, end: 20151021
  31. CYTOSAR [Concomitant]
     Active Substance: CYTARABINE
     Indication: ACUTE MYELOID LEUKAEMIA
     Dosage: 70 MG, IN 1 TOTAL
     Route: 037
     Dates: start: 20151021, end: 20151021
  32. CEFAZOLIN SODIUM. [Concomitant]
     Active Substance: CEFAZOLIN SODIUM
     Indication: CENTRAL VENOUS CATHETERISATION
     Dosage: 800 MG, IN 1 TOTAL
     Route: 042
     Dates: start: 20151021, end: 20151021
  33. HEPARIN [Concomitant]
     Active Substance: HEPARIN SODIUM
     Dosage: 50 IU
     Route: 042
     Dates: start: 20151022
  34. SOLU-MEDROL [Concomitant]
     Active Substance: METHYLPREDNISOLONE SODIUM SUCCINATE
     Indication: PREMEDICATION
     Dosage: 33.2 MG, IN 1 TOTAL
     Route: 042
     Dates: start: 20151027, end: 20151027
  35. DIPRIVAN [Suspect]
     Active Substance: PROPOFOL
     Dosage: 20 MG, IN 1 AS NECESSARY
     Route: 065
     Dates: start: 20151021, end: 20151021
  36. FORTAZ [Concomitant]
     Active Substance: CEFTAZIDIME SODIUM
     Indication: FEBRILE NEUTROPENIA
     Dosage: 2 G, 1 IN 8 HOUR
     Route: 042
     Dates: start: 20151027, end: 20151029

REACTIONS (10)
  - Neutrophil count decreased [Recovering/Resolving]
  - Pyrexia [Recovered/Resolved]
  - Bone pain [Recovered/Resolved]
  - Constipation [Recovered/Resolved]
  - Febrile neutropenia [Recovered/Resolved]
  - Platelet count decreased [Recovered/Resolved]
  - Anaemia [Recovered/Resolved]
  - Hypotension [Recovered/Resolved]
  - Proctalgia [Recovered/Resolved]
  - Alanine aminotransferase increased [Recovered/Resolved]

NARRATIVE: CASE EVENT DATE: 20151104
